FAERS Safety Report 9211877 (Version 2)
Quarter: 2013Q2

REPORT INFORMATION
  Report Type: Spontaneous
  Country: US (occurrence: US)
  Receive Date: 20130404
  Receipt Date: 20130506
  Transmission Date: 20140414
  Serious: Yes (Hospitalization)
  Sender: FDA-Public Use
  Company Number: US-AMGEN-USASP2013022598

PATIENT
  Age: 37 Year
  Sex: Male

DRUGS (2)
  1. ENBREL [Suspect]
     Indication: PSORIASIS
     Dosage: 50 MG, QWK
  2. HUMIRA [Concomitant]
     Dosage: UNK
     Dates: end: 20130120

REACTIONS (3)
  - Encephalitis viral [Recovered/Resolved]
  - Migraine [Recovered/Resolved]
  - Psoriasis [Not Recovered/Not Resolved]
